FAERS Safety Report 8598168-9 (Version None)
Quarter: 2012Q3

REPORT INFORMATION
  Report Type: 
  Country: None (occurrence: None)
  Receive Date: 20120816
  Receipt Date: 20120809
  Transmission Date: 20120928
  Serious: Yes (Other)
  Sender: FDA-Public Use
  Company Number: PHHY2012JP061186

PATIENT
  Sex: Female

DRUGS (2)
  1. CORTICOSTEROID NOS [Concomitant]
     Route: 048
  2. NEORAL [Suspect]
     Indication: INTERSTITIAL LUNG DISEASE
     Route: 048
     Dates: end: 20120709

REACTIONS (3)
  - SCLERODERMA [None]
  - ORAL ADMINISTRATION COMPLICATION [None]
  - CONCOMITANT DISEASE PROGRESSION [None]
